FAERS Safety Report 8160074-1 (Version None)
Quarter: 2012Q1

REPORT INFORMATION
  Report Type: 
  Country: None (occurrence: None)
  Receive Date: 20120223
  Receipt Date: 20120216
  Transmission Date: 20120608
  Serious: Yes (Other)
  Sender: FDA-Public Use
  Company Number: PHHY2012GB013479

PATIENT
  Age: 89 Year
  Sex: Female

DRUGS (2)
  1. CLARITHROMYCIN [Interacting]
     Indication: RESPIRATORY TRACT INFECTION
     Route: 048
  2. FLUOXETINE [Suspect]
     Dosage: 20 MG, UNK
     Route: 048

REACTIONS (12)
  - ATRIAL FIBRILLATION [None]
  - CLONUS [None]
  - MYDRIASIS [None]
  - HYPERHIDROSIS [None]
  - HYPERREFLEXIA [None]
  - SEROTONIN SYNDROME [None]
  - CONFUSIONAL STATE [None]
  - MUSCLE RIGIDITY [None]
  - TREMOR [None]
  - DRUG INTERACTION [None]
  - HYPERTHERMIA [None]
  - TACHYCARDIA [None]
